FAERS Safety Report 14047931 (Version 1)
Quarter: 2017Q4

REPORT INFORMATION
  Report Type: Spontaneous
  Country: US (occurrence: US)
  Receive Date: 20171005
  Receipt Date: 20171005
  Transmission Date: 20180321
  Serious: Yes (Other)
  Sender: FDA-Public Use
  Company Number: None

PATIENT
  Age: 27 Year
  Sex: Male
  Weight: 85.5 kg

DRUGS (1)
  1. PREDNISONE. [Suspect]
     Active Substance: PREDNISONE
     Indication: SYSTEMIC INFLAMMATORY RESPONSE SYNDROME
     Route: 048
     Dates: start: 20160302, end: 20161223

REACTIONS (6)
  - Ataxia [None]
  - Dysphonia [None]
  - IIIrd nerve paresis [None]
  - Cognitive disorder [None]
  - Osteonecrosis [None]
  - Balance disorder [None]

NARRATIVE: CASE EVENT DATE: 20171005
